FAERS Safety Report 23454691 (Version 1)
Quarter: 2024Q1

REPORT INFORMATION
  Report Type: Other
  Country: BE (occurrence: None)
  Receive Date: 20240130
  Receipt Date: 20240130
  Transmission Date: 20240409
  Serious: Yes (Death, Life-Threatening, Other)
  Sender: FDA-Public Use
  Company Number: BE-ROCHE-3499560

PATIENT

DRUGS (2)
  1. TRASTUZUMAB [Suspect]
     Active Substance: TRASTUZUMAB
     Indication: Breast cancer
     Route: 042
  2. LAPATINIB [Suspect]
     Active Substance: LAPATINIB
     Indication: Breast cancer
     Route: 065

REACTIONS (26)
  - Pulmonary embolism [Fatal]
  - Myocardial infarction [Fatal]
  - Acute myocardial infarction [Unknown]
  - Atrial thrombosis [Unknown]
  - Cerebrovascular accident [Unknown]
  - Hypertension [Unknown]
  - Jugular vein thrombosis [Unknown]
  - Pulmonary thrombosis [Unknown]
  - Thrombosis [Unknown]
  - Thrombosis in device [Unknown]
  - Cardiac ventricular thrombosis [Unknown]
  - Deep vein thrombosis [Unknown]
  - Device related thrombosis [Unknown]
  - Embolism venous [Unknown]
  - Implant site thrombosis [Unknown]
  - Injection site thrombosis [Unknown]
  - Pulmonary arterial hypertension [Unknown]
  - Pulmonary hypertension [Unknown]
  - Subclavian vein thrombosis [Unknown]
  - Thrombophlebitis [Unknown]
  - Transient ischaemic attack [Unknown]
  - Venous thrombosis limb [Unknown]
  - Superficial vein thrombosis [Unknown]
  - Venous thrombosis [Unknown]
  - Diastolic hypertension [Unknown]
  - Embolism [Unknown]
